FAERS Safety Report 10187951 (Version 1)
Quarter: 2014Q2

REPORT INFORMATION
  Report Type: Spontaneous
  Country: US (occurrence: US)
  Receive Date: 20140522
  Receipt Date: 20140522
  Transmission Date: 20141212
  Serious: No
  Sender: FDA-Public Use
  Company Number: US-SA-2013SA095960

PATIENT
  Age: 69 Year
  Sex: Male
  Weight: 88.45 kg

DRUGS (5)
  1. LANTUS SOLOSTAR [Suspect]
     Indication: TYPE 2 DIABETES MELLITUS
     Dosage: DOSE:60 UNIT(S)
     Route: 051
     Dates: start: 20120130
  2. SOLOSTAR [Concomitant]
     Indication: TYPE 2 DIABETES MELLITUS
     Dates: start: 20120130
  3. GLIMEPIRIDE [Concomitant]
     Route: 048
  4. LOSARTAN [Concomitant]
     Route: 065
  5. SIMVASTATIN [Concomitant]
     Route: 065

REACTIONS (1)
  - Psoriasis [Not Recovered/Not Resolved]
